FAERS Safety Report 6826558-0 (Version None)
Quarter: 2010Q3

REPORT INFORMATION
  Report Type: 
  Country: None (occurrence: None)
  Receive Date: 20100709
  Receipt Date: 20100624
  Transmission Date: 20110219
  Serious: Yes (Other)
  Sender: FDA-Public Use
  Company Number: FR-GENENTECH-301032

PATIENT
  Sex: Male
  Weight: 119 kg

DRUGS (6)
  1. XOLAIR [Suspect]
     Indication: ASTHMA
     Dosage: 300 MG, 1/MONTH
     Route: 058
     Dates: start: 20061101
  2. XOLAIR [Suspect]
     Dosage: 300 MG, Q2W
     Route: 058
     Dates: start: 20070501, end: 20100501
  3. SERETIDE [Concomitant]
     Indication: PRODUCT USED FOR UNKNOWN INDICATION
     Dosage: UNK
     Route: 065
  4. SINGULAIR [Concomitant]
     Indication: PRODUCT USED FOR UNKNOWN INDICATION
     Dosage: UNK
     Route: 065
  5. VENTOLIN [Concomitant]
     Indication: PRODUCT USED FOR UNKNOWN INDICATION
  6. AERIUS [Concomitant]
     Indication: PRODUCT USED FOR UNKNOWN INDICATION

REACTIONS (1)
  - WEIGHT INCREASED [None]
